FAERS Safety Report 7721277-0 (Version None)
Quarter: 2011Q3

REPORT INFORMATION
  Report Type: 
  Country: None (occurrence: None)
  Receive Date: 20110831
  Receipt Date: 20110817
  Transmission Date: 20111222
  Serious: Yes (Hospitalization, Other)
  Sender: FDA-Public Use
  Company Number: PHHY2011BR06846

PATIENT
  Sex: Female
  Weight: 57 kg

DRUGS (4)
  1. FUROSEMIDE [Suspect]
     Indication: HYPERTENSION
     Dosage: 1 DF DAILY
     Route: 048
     Dates: end: 20110201
  2. ALDOMET [Suspect]
     Indication: HYPERTENSION
     Dosage: 1 DF, DAILY
     Route: 048
     Dates: start: 20110201, end: 20110201
  3. DIOVAN HCT [Suspect]
     Indication: HYPERTENSION
     Dosage: 1 TABLET DAILY (80/12.5 MG)
     Route: 048
     Dates: start: 20110101, end: 20110201
  4. VITAMIN A [Concomitant]

REACTIONS (6)
  - HELLP SYNDROME [None]
  - MATERNAL EXPOSURE DURING PREGNANCY [None]
  - PREMATURE DELIVERY [None]
  - HYPERTENSION [None]
  - PRE-ECLAMPSIA [None]
  - ECLAMPSIA [None]
